FAERS Safety Report 10162461 (Version 3)
Quarter: 2014Q2

REPORT INFORMATION
  Report Type: Report from Study
  Country: US (occurrence: US)
  Receive Date: 20140509
  Receipt Date: 20140609
  Transmission Date: 20141212
  Serious: Yes (Other)
  Sender: FDA-Public Use
  Company Number: US-SA-2014SA058489

PATIENT
  Age: 75 Year
  Sex: Female

DRUGS (1)
  1. AUBAGIO [Suspect]
     Indication: MULTIPLE SCLEROSIS
     Route: 048
     Dates: start: 20140401, end: 201405

REACTIONS (9)
  - Chest pain [Unknown]
  - Heart rate irregular [Unknown]
  - Dizziness [Unknown]
  - Balance disorder [Unknown]
  - Fatigue [Unknown]
  - Somnolence [Unknown]
  - Arthritis [Unknown]
  - Dizziness [Recovered/Resolved]
  - Feeling abnormal [Unknown]
